FAERS Safety Report 9880227 (Version 1)
Quarter: 2014Q1

REPORT INFORMATION
  Report Type: Spontaneous
  Country: US (occurrence: US)
  Receive Date: 20140207
  Receipt Date: 20140207
  Transmission Date: 20141002
  Serious: No
  Sender: FDA-Public Use
  Company Number: US-BIOGENIDEC-2014BI009546

PATIENT
  Age: 52 Year
  Sex: Male

DRUGS (7)
  1. TECFIDERA [Suspect]
     Indication: MULTIPLE SCLEROSIS
     Route: 048
     Dates: start: 20140122, end: 20140127
  2. ZOLOFT [Concomitant]
  3. FOLIC ACID [Concomitant]
  4. LISINOPRIL [Concomitant]
  5. JANUVIA [Concomitant]
  6. AMARYL [Concomitant]
  7. AMPYRA [Concomitant]

REACTIONS (2)
  - Fatigue [Unknown]
  - Underdose [Unknown]
